FAERS Safety Report 4643665-1 (Version None)
Quarter: 2005Q2

REPORT INFORMATION
  Report Type: 
  Country: None (occurrence: None)
  Receive Date: 20050425
  Receipt Date: 20050411
  Transmission Date: 20051028
  Serious: Yes (Other)
  Sender: FDA-Public Use
  Company Number: GB-JNJFOC-20041203283

PATIENT
  Age: 60 Year
  Sex: Male
  Weight: 60.33 kg

DRUGS (1)
  1. MOTRIN [Suspect]
     Indication: ARTHRALGIA
     Route: 049

REACTIONS (1)
  - SPONTANEOUS PENILE ERECTION [None]
